FAERS Safety Report 9223439 (Version 1)
Quarter: 2013Q2

REPORT INFORMATION
  Report Type: Spontaneous
  Country: GB (occurrence: GB)
  Receive Date: 20130410
  Receipt Date: 20130410
  Transmission Date: 20140414
  Serious: Yes (Hospitalization)
  Sender: FDA-Public Use
  Company Number: GB-GLAXOSMITHKLINE-B0880017A

PATIENT
  Age: 24 Year
  Sex: Female

DRUGS (1)
  1. NIQUITIN CQ CLEAR 14MG [Suspect]
     Indication: EX-TOBACCO USER
     Dosage: 14MG PER DAY
     Route: 062
     Dates: start: 20130326, end: 20130326

REACTIONS (5)
  - Chest pain [Recovered/Resolved]
  - Vomiting [Recovered/Resolved]
  - Claustrophobia [Unknown]
  - Disorientation [Unknown]
  - Dizziness [Recovered/Resolved]
